FAERS Safety Report 21451194 (Version 4)
Quarter: 2023Q2

REPORT INFORMATION
  Report Type: Report from Study
  Country: CA (occurrence: CA)
  Receive Date: 20221013
  Receipt Date: 20230526
  Transmission Date: 20230721
  Serious: Yes (Life-Threatening, Other)
  Sender: FDA-Public Use
  Company Number: CA-GLAXOSMITHKLINE-CA2022143942

PATIENT

DRUGS (5)
  1. MEPOLIZUMAB [Suspect]
     Active Substance: MEPOLIZUMAB
     Indication: Asthma
     Dosage: 100 MG, Q4W
     Route: 058
     Dates: start: 20220314
  2. TEZSPIRE [Suspect]
     Active Substance: TEZEPELUMAB-EKKO
     Indication: Product used for unknown indication
     Dosage: UNK
  3. SYMBICORT [Concomitant]
     Active Substance: BUDESONIDE\FORMOTEROL FUMARATE DIHYDRATE
     Indication: Product used for unknown indication
     Dosage: 5 PUFF(S), QD,200/6MCG
  4. PULMICORT TURBUHALER [Concomitant]
     Active Substance: BUDESONIDE
     Indication: Product used for unknown indication
     Dosage: 1 PUFF(S), BID
  5. BRICANYL [Concomitant]
     Active Substance: TERBUTALINE SULFATE
     Indication: Product used for unknown indication
     Dosage: UNK,0.5MG 1-2 PUFFS QID AND PRN

REACTIONS (13)
  - Adverse drug reaction [Unknown]
  - Bradycardia [Unknown]
  - Alopecia [Unknown]
  - Heart rate decreased [Unknown]
  - Malaise [Unknown]
  - Insomnia [Unknown]
  - Wheezing [Unknown]
  - Cough [Unknown]
  - Productive cough [Unknown]
  - Dizziness [Unknown]
  - Dyspnoea [Unknown]
  - Bedridden [Unknown]
  - Heart rate increased [Unknown]
